FAERS Safety Report 15534223 (Version 1)
Quarter: 2018Q4

REPORT INFORMATION
  Report Type: Spontaneous
  Country: US (occurrence: US)
  Receive Date: 20181019
  Receipt Date: 20181019
  Transmission Date: 20190205
  Serious: No
  Sender: FDA-Public Use
  Company Number: None

PATIENT
  Age: 59 Year
  Sex: Female
  Weight: 83.25 kg

DRUGS (3)
  1. HYDROCODONE-ACETAMINOPHEN 5-325MG [Suspect]
     Active Substance: ACETAMINOPHEN\HYDROCODONE BITARTRATE
     Indication: SEIZURE
     Dosage: ?          QUANTITY:90 TABLET(S);?
     Route: 048
     Dates: start: 20181015, end: 20181018
  2. HYDROCODONE-ACETAMINOPHEN 5-325MG [Suspect]
     Active Substance: ACETAMINOPHEN\HYDROCODONE BITARTRATE
     Indication: PRODUCT USED FOR UNKNOWN INDICATION
     Dosage: ?          QUANTITY:90 TABLET(S);?
     Route: 048
     Dates: start: 20181015, end: 20181018
  3. HYDROCODONE-ACETAMINOPHEN 5-325MG [Suspect]
     Active Substance: ACETAMINOPHEN\HYDROCODONE BITARTRATE
     Indication: MIGRAINE
     Dosage: ?          QUANTITY:90 TABLET(S);?
     Route: 048
     Dates: start: 20181015, end: 20181018

REACTIONS (3)
  - Product quality issue [None]
  - Treatment failure [None]
  - Product lot number issue [None]

NARRATIVE: CASE EVENT DATE: 20181019
